FAERS Safety Report 12043730 (Version 2)
Quarter: 2016Q1

REPORT INFORMATION
  Report Type: Report from Study
  Country: US (occurrence: US)
  Receive Date: 20160208
  Receipt Date: 20160325
  Transmission Date: 20160526
  Serious: Yes (Hospitalization, Other)
  Sender: FDA-Public Use
  Company Number: US-ABBVIE-15P-163-1355273-00

PATIENT
  Sex: Female

DRUGS (3)
  1. HUMIRA [Suspect]
     Active Substance: ADALIMUMAB
     Indication: RHEUMATOID ARTHRITIS
     Route: 050
     Dates: start: 2006, end: 201603
  2. CIMZIA [Suspect]
     Active Substance: CERTOLIZUMAB PEGOL
     Indication: RHEUMATOID ARTHRITIS
     Route: 065
     Dates: start: 201603
  3. HUMIRA [Suspect]
     Active Substance: ADALIMUMAB
     Indication: CROHN^S DISEASE

REACTIONS (9)
  - Pyrexia [Recovered/Resolved]
  - Injection site pain [Recovered/Resolved]
  - Nausea [Recovered/Resolved]
  - Amnesia [Not Recovered/Not Resolved]
  - Cardiac failure congestive [Unknown]
  - Cerebrovascular accident [Recovered/Resolved]
  - Mouth injury [Recovered/Resolved]
  - Wrong technique in product usage process [Recovered/Resolved]
  - Fall [Recovered/Resolved]

NARRATIVE: CASE EVENT DATE: 2006
